FAERS Safety Report 8209450-9 (Version None)
Quarter: 2012Q1

REPORT INFORMATION
  Report Type: 
  Country: None (occurrence: None)
  Receive Date: 20120314
  Receipt Date: 20120306
  Transmission Date: 20120608
  Serious: Yes (Hospitalization)
  Sender: FDA-Public Use
  Company Number: ES-ALEXION-A201001347

PATIENT

DRUGS (4)
  1. SOLIRIS [Suspect]
     Indication: PAROXYSMAL NOCTURNAL HAEMOGLOBINURIA
     Dosage: 600 MG, QW
     Route: 042
     Dates: start: 20080301
  2. FOLIC ACID [Concomitant]
  3. PANTOPRAZOLE [Concomitant]
  4. SOLIRIS [Suspect]
     Dosage: 900 MG, Q2W
     Route: 042
     Dates: end: 20101005

REACTIONS (6)
  - NEISSERIA INFECTION [None]
  - SEPSIS [None]
  - VASCULITIS [None]
  - ARTHRITIS [None]
  - HAEMOLYSIS [None]
  - HAEMOGLOBIN DECREASED [None]
